FAERS Safety Report 6291292-5 (Version None)
Quarter: 2009Q3

REPORT INFORMATION
  Report Type: 
  Country: None (occurrence: None)
  Receive Date: 20090728
  Receipt Date: 20080828
  Transmission Date: 20100115
  Serious: Yes (Hospitalization)
  Sender: FDA-Public Use
  Company Number: 267029

PATIENT
  Age: 74 Year
  Sex: Male

DRUGS (1)
  1. TNKASE [Suspect]
     Indication: ACUTE MYOCARDIAL INFARCTION
     Dosage: 35 MG, SINGLE
     Dates: start: 20080827

REACTIONS (2)
  - BLOOD PRESSURE SYSTOLIC DECREASED [None]
  - HAEMATOMA [None]
